FAERS Safety Report 16221905 (Version 1)
Quarter: 2019Q2

REPORT INFORMATION
  Report Type: Report from Study
  Country: JP (occurrence: JP)
  Receive Date: 20190422
  Receipt Date: 20190422
  Transmission Date: 20190711
  Serious: Yes (Life-Threatening)
  Sender: FDA-Public Use
  Company Number: JP-TEVA-2019-JP-1040600

PATIENT
  Age: 8 Month
  Sex: Female

DRUGS (14)
  1. FLUDARABINE [Suspect]
     Active Substance: FLUDARABINE PHOSPHATE
     Indication: ACUTE MYELOID LEUKAEMIA
     Dosage: 3 COURSES
     Route: 065
  2. CYCLOPHOSPHAMIDE. [Suspect]
     Active Substance: CYCLOPHOSPHAMIDE
     Indication: ACUTE MYELOID LEUKAEMIA
     Dosage: 2 COURSES
     Route: 065
  3. HYDROCORTISONE. [Suspect]
     Active Substance: HYDROCORTISONE
     Indication: ACUTE MYELOID LEUKAEMIA
     Dosage: STEROID CUMULATIVE DOSE PRIOR TO REPLACEMENT THERAPY: 3656 MG/M2
     Route: 065
  4. MELPHALAN. [Suspect]
     Active Substance: MELPHALAN
     Indication: ACUTE MYELOID LEUKAEMIA
     Dosage: 3 COURSES
     Route: 065
  5. HYDROCORTISONE. [Suspect]
     Active Substance: HYDROCORTISONE
     Dosage: IN TAPERING DOSES
     Route: 065
  6. FLUCONAZOLE. [Suspect]
     Active Substance: FLUCONAZOLE
     Indication: PROPHYLAXIS
     Route: 065
  7. VP-16 [Suspect]
     Active Substance: ETOPOSIDE
     Indication: ACUTE MYELOID LEUKAEMIA
     Dosage: 2 COURSES
     Route: 065
  8. HYDROCORTISONE. [Suspect]
     Active Substance: HYDROCORTISONE
     Indication: NERVOUS SYSTEM DISORDER PROPHYLAXIS
     Route: 065
  9. ARA-C [Suspect]
     Active Substance: CYTARABINE
     Indication: NERVOUS SYSTEM DISORDER PROPHYLAXIS
     Dosage: 6 COURSES
     Route: 037
  10. DEXAMETHASONE. [Suspect]
     Active Substance: DEXAMETHASONE
     Indication: ACUTE MYELOID LEUKAEMIA
     Dosage: IN TAPERING DOSES
     Route: 065
  11. BUSULFAN. [Suspect]
     Active Substance: BUSULFAN
     Indication: ACUTE MYELOID LEUKAEMIA
     Dosage: 2 COURSES
     Route: 065
  12. METHOTREXATE. [Suspect]
     Active Substance: METHOTREXATE
     Indication: NERVOUS SYSTEM DISORDER PROPHYLAXIS
     Dosage: INFUSION; SCHEDULED 6 COURSES; SYMPTOMS OF ADRENAL INSUFFICIENCY (HYPONATRAEMIA) DEVELOPED AFTER ...
     Route: 037
  13. HYDROCORTISONE. [Suspect]
     Active Substance: HYDROCORTISONE
     Indication: ADRENAL INSUFFICIENCY
     Dosage: 6 COURSES
     Route: 037
  14. PREDNISONE. [Suspect]
     Active Substance: PREDNISONE
     Indication: ACUTE MYELOID LEUKAEMIA
     Dosage: IN TAPERING DOSES
     Route: 065

REACTIONS (2)
  - Body height below normal [Unknown]
  - Adrenal insufficiency [Recovering/Resolving]
